FAERS Safety Report 8773371 (Version 3)
Quarter: 2013Q3

REPORT INFORMATION
  Report Type: Spontaneous
  Country: US (occurrence: US)
  Receive Date: 20120907
  Receipt Date: 20130801
  Transmission Date: 20140515
  Serious: Yes (Hospitalization, Other)
  Sender: FDA-Public Use
  Company Number: US-BAYER-2012-092604

PATIENT
  Age: 39 Year
  Sex: Female
  Weight: 77.1 kg

DRUGS (17)
  1. OCELLA [Suspect]
     Indication: CONTRACEPTION
     Dosage: UNK
     Dates: start: 200901, end: 201011
  2. OCELLA [Suspect]
     Indication: ACNE
     Dosage: UNK
     Dates: start: 201102
  3. OCELLA [Suspect]
     Indication: PREMENSTRUAL SYNDROME
  4. BEYAZ [Suspect]
     Indication: CONTRACEPTION
     Dosage: UNK
     Dates: start: 200901, end: 201108
  5. BEYAZ [Suspect]
     Indication: ACNE
     Dosage: UNK
     Dates: start: 201102
  6. BEYAZ [Suspect]
     Indication: PREMENSTRUAL SYNDROME
  7. ZARAH [Suspect]
     Dosage: UNK
     Dates: start: 201010, end: 201102
  8. CITALOPRAM [Concomitant]
     Indication: DEPRESSION
     Dosage: 20 MG, UNK
     Route: 048
     Dates: start: 20110525, end: 20110817
  9. ALLEGRA-D [FEXOFENADINE HYDROCHLORIDE,PSEUDOEPHEDRINE HYDROCHLORID [Concomitant]
     Dosage: UNK
     Route: 048
     Dates: start: 20110718
  10. FLEXERIL [Concomitant]
     Dosage: 10 MG, PRN
     Route: 048
  11. ST. JOHN^S WORT [Concomitant]
     Dosage: PRN
  12. VITAMIN C [ASCORBIC ACID] [Concomitant]
     Dosage: PRN
  13. OMEPRAZOLE [Concomitant]
     Indication: PROPHYLAXIS AGAINST GASTROINTESTINAL ULCER
  14. ALVESCO [Concomitant]
     Dosage: 160 MCG, INHALED ONCE A DAY
  15. REVATIO [Concomitant]
     Indication: DYSPNOEA
     Dosage: 20 MG, BID
  16. CYMBALTA [Concomitant]
  17. CELEBREX [Concomitant]

REACTIONS (15)
  - Pulmonary embolism [Recovered/Resolved]
  - Deep vein thrombosis [Recovered/Resolved]
  - Hepatobiliary scan abnormal [None]
  - Injury [Recovered/Resolved]
  - Pain [None]
  - Pain [Recovered/Resolved]
  - Pain in extremity [Recovered/Resolved]
  - Oedema [Recovered/Resolved]
  - Dyspnoea [Recovered/Resolved]
  - Abdominal pain upper [None]
  - Thrombophlebitis [None]
  - Back pain [None]
  - Enthesopathy [None]
  - Uterine leiomyoma [None]
  - Oedema peripheral [Recovered/Resolved]
